FAERS Safety Report 6630616-3 (Version None)
Quarter: 2010Q1

REPORT INFORMATION
  Report Type: 
  Country: None (occurrence: None)
  Receive Date: 20100311
  Receipt Date: 20090522
  Transmission Date: 20100710
  Serious: No
  Sender: FDA-Public Use
  Company Number: US-BIOGENIDEC-2009BI015818

PATIENT
  Age: 61 Year
  Sex: Female

DRUGS (1)
  1. AVONEX [Suspect]
     Indication: MULTIPLE SCLEROSIS
     Route: 030
     Dates: start: 19990201

REACTIONS (5)
  - BLOOD URINE PRESENT [None]
  - CONTUSION [None]
  - GINGIVAL DISORDER [None]
  - ORAL CAVITY FISTULA [None]
  - WHITE BLOOD CELLS URINE [None]
